FAERS Safety Report 7329206-9 (Version None)
Quarter: 2011Q1

REPORT INFORMATION
  Report Type: 
  Country: None (occurrence: None)
  Receive Date: 20110303
  Receipt Date: 20110224
  Transmission Date: 20110831
  Serious: Yes (Hospitalization)
  Sender: FDA-Public Use
  Company Number: A0897736A

PATIENT
  Age: 70 Year
  Sex: Male

DRUGS (6)
  1. ATENOLOL [Concomitant]
  2. LIPITOR [Concomitant]
  3. ZETIA [Concomitant]
  4. AVANDIA [Suspect]
     Dosage: 4MG PER DAY
     Route: 065
     Dates: start: 20020801, end: 20070710
  5. MONOPRIL [Concomitant]
  6. PRILOSEC [Concomitant]

REACTIONS (9)
  - MYOCARDIAL INFARCTION [None]
  - DIZZINESS [None]
  - CORONARY ARTERY BYPASS [None]
  - TINNITUS [None]
  - CEREBROVASCULAR ACCIDENT [None]
  - DEAFNESS [None]
  - TRANSIENT ISCHAEMIC ATTACK [None]
  - VERTIGO [None]
  - ANGINA PECTORIS [None]
